FAERS Safety Report 15644140 (Version 1)
Quarter: 2018Q4

REPORT INFORMATION
  Report Type: Spontaneous
  Country: FR (occurrence: FR)
  Receive Date: 20181121
  Receipt Date: 20181121
  Transmission Date: 20190205
  Serious: Yes (Hospitalization, Other)
  Sender: FDA-Public Use
  Company Number: FR-PROVELL PHARMACEUTICALS-2059151

PATIENT
  Age: 55 Year
  Sex: Female

DRUGS (6)
  1. EUTHYROX [Suspect]
     Active Substance: LEVOTHYROXINE SODIUM
     Indication: POST PROCEDURAL HYPOTHYROIDISM
     Dates: start: 20170422
  2. ROPINIROLE. [Concomitant]
     Active Substance: ROPINIROLE
  3. CORGARD [Concomitant]
     Active Substance: NADOLOL
  4. TAHOR [Concomitant]
     Active Substance: ATORVASTATIN CALCIUM
  5. INEXIUM [Concomitant]
     Active Substance: ESOMEPRAZOLE
  6. DOLIPRANE [Concomitant]
     Active Substance: ACETAMINOPHEN

REACTIONS (26)
  - Vision blurred [None]
  - Arthralgia [None]
  - Anxiety [None]
  - Fatigue [None]
  - Blood albumin decreased [None]
  - Depression [None]
  - Suicidal ideation [None]
  - Amnesia [None]
  - Feeling drunk [None]
  - Discomfort [None]
  - Abnormal behaviour [None]
  - Sleep disorder [None]
  - Myalgia [None]
  - Blood phosphorus increased [None]
  - Sleep apnoea syndrome [None]
  - Palpitations [None]
  - Libido decreased [None]
  - Alopecia [None]
  - Heart rate decreased [None]
  - Abdominal pain upper [None]
  - Loss of personal independence in daily activities [None]
  - Decreased appetite [None]
  - Headache [None]
  - Somnolence [None]
  - Snoring [None]
  - Weight decreased [None]

NARRATIVE: CASE EVENT DATE: 2017
